FAERS Safety Report 13739716 (Version 2)
Quarter: 2017Q3

REPORT INFORMATION
  Report Type: Spontaneous
  Country: US (occurrence: US)
  Receive Date: 20170711
  Receipt Date: 20170725
  Transmission Date: 20171127
  Serious: No
  Sender: FDA-Public Use
  Company Number: US-GLAXOSMITHKLINE-US2017GSK106283

PATIENT
  Age: 53 Year
  Sex: Female
  Weight: 54.42 kg

DRUGS (6)
  1. SOLUMEDROL SOLUTION FOR INJECTION [Suspect]
     Active Substance: METHYLPREDNISOLONE SODIUM SUCCINATE
     Dosage: 16 MG, UNK
  2. SOLUMEDROL SOLUTION FOR INJECTION [Suspect]
     Active Substance: METHYLPREDNISOLONE SODIUM SUCCINATE
     Dosage: UNK
  3. BENLYSTA [Suspect]
     Active Substance: BELIMUMAB
     Dosage: 544 MG, UNK
  4. BENLYSTA [Suspect]
     Active Substance: BELIMUMAB
     Indication: SYSTEMIC LUPUS ERYTHEMATOSUS
     Dosage: UNK
     Route: 042
  5. ARMODAFINIL TABLET [Concomitant]
     Dosage: 1/2 TO 1 TABLET, 1D
  6. SOLUMEDROL SOLUTION FOR INJECTION [Suspect]
     Active Substance: METHYLPREDNISOLONE SODIUM SUCCINATE
     Dosage: 20 MG, UNK

REACTIONS (6)
  - Feeling abnormal [Unknown]
  - Decreased immune responsiveness [Unknown]
  - Malaise [Unknown]
  - Insomnia [Unknown]
  - Herpes zoster [Unknown]
  - Influenza like illness [Recovered/Resolved]

NARRATIVE: CASE EVENT DATE: 201608
